FAERS Safety Report 21842108 (Version 2)
Quarter: 2023Q1

REPORT INFORMATION
  Report Type: Spontaneous
  Country: IT (occurrence: None)
  Receive Date: 20230110
  Receipt Date: 20230130
  Transmission Date: 20230417
  Serious: Yes (Hospitalization)
  Sender: FDA-Public Use
  Company Number: IT-ROCHE-3256083

PATIENT
  Age: 42 Year
  Sex: Female

DRUGS (2)
  1. BACTRIM [Suspect]
     Active Substance: SULFAMETHOXAZOLE\TRIMETHOPRIM
     Indication: Antifungal prophylaxis
     Dosage: HALF A TABLET EVERY OTHER DAY (=80+400 MG EVERY 48 HOURS)
     Route: 048
     Dates: start: 20220727, end: 20221111
  2. VALGANCICLOVIR [Suspect]
     Active Substance: VALGANCICLOVIR
     Indication: Disseminated cytomegaloviral infection
     Route: 048
     Dates: start: 20221027, end: 20221111

REACTIONS (3)
  - Thrombocytopenia [Recovered/Resolved]
  - Neutropenia [Recovered/Resolved]
  - Lymphopenia [Recovered/Resolved]

NARRATIVE: CASE EVENT DATE: 20221111
